FAERS Safety Report 22175515 (Version 7)
Quarter: 2023Q2

REPORT INFORMATION
  Report Type: Spontaneous
  Country: TR (occurrence: TR)
  Receive Date: 20230405
  Receipt Date: 20230620
  Transmission Date: 20230721
  Serious: Yes (Hospitalization)
  Sender: FDA-Public Use
  Company Number: TR-SA-SAC20230404001269

PATIENT
  Age: 37 Year
  Sex: Female
  Weight: 77 kg

DRUGS (6)
  1. LEMTRADA [Suspect]
     Active Substance: ALEMTUZUMAB
     Indication: Multiple sclerosis
     Dosage: 60 MG
     Route: 042
     Dates: start: 20230307
  2. LIORESAL [Concomitant]
     Active Substance: BACLOFEN
     Indication: Multiple sclerosis
     Dosage: 3 DF, QD(3X10MG)
     Route: 048
     Dates: start: 2013
  3. TIZANIDINE [Concomitant]
     Active Substance: TIZANIDINE
     Dosage: 1 DF, QD(1X6MG)
     Route: 048
     Dates: start: 2013
  4. AMANTADINE SULFATE [Concomitant]
     Active Substance: AMANTADINE SULFATE
     Indication: Urinary incontinence
     Dosage: 2 DF, QD(2X1)
     Route: 048
     Dates: start: 2020
  5. PAROXETINE HYDROCHLORIDE [Concomitant]
     Active Substance: PAROXETINE HYDROCHLORIDE
     Indication: Anxiety
     Dosage: 1 DF, QD(1X30MG)
     Route: 048
     Dates: start: 2013
  6. PERINDOPRIL ARGININE [Concomitant]
     Active Substance: PERINDOPRIL ARGININE
     Indication: Hypertension
     Dosage: 10 MG, QD(1X10MG)
     Route: 048
     Dates: start: 2013

REACTIONS (11)
  - Vision blurred [Not Recovered/Not Resolved]
  - Hypokinesia [Not Recovered/Not Resolved]
  - Salivary hypersecretion [Not Recovered/Not Resolved]
  - Torticollis [Not Recovered/Not Resolved]
  - Condition aggravated [Not Recovered/Not Resolved]
  - Cough [Recovering/Resolving]
  - Abdominal pain upper [Not Recovered/Not Resolved]
  - Urinary tract infection [Recovered/Resolved]
  - Nausea [Recovered/Resolved]
  - Pyrexia [Recovered/Resolved]
  - Oropharyngeal discomfort [Recovered/Resolved]

NARRATIVE: CASE EVENT DATE: 20230322
